FAERS Safety Report 7055444-9 (Version None)
Quarter: 2010Q4

REPORT INFORMATION
  Report Type: 
  Country: None (occurrence: None)
  Receive Date: 20101021
  Receipt Date: 20101014
  Transmission Date: 20110411
  Serious: Yes (Life-Threatening)
  Sender: FDA-Public Use
  Company Number: US-TYCO HEALTHCARE/MALLINCKRODT-T201002123

PATIENT
  Sex: Female

DRUGS (2)
  1. OPTIRAY 350 [Suspect]
     Indication: COMPUTERISED TOMOGRAM
     Dosage: 75 ML, SINGLE
     Route: 042
     Dates: start: 20101012, end: 20101012
  2. OPTIRAY 350 [Suspect]
     Dosage: UNK

REACTIONS (3)
  - HYPERHIDROSIS [None]
  - MYOCARDIAL INFARCTION [None]
  - SPEECH DISORDER [None]
